FAERS Safety Report 26213635 (Version 1)
Quarter: 2025Q4

REPORT INFORMATION
  Report Type: Spontaneous
  Country: US (occurrence: US)
  Receive Date: 20251230
  Receipt Date: 20251230
  Transmission Date: 20260117
  Serious: Yes (Other)
  Sender: PFIZER
  Company Number: US-PFIZER INC-PV202500151685

PATIENT
  Age: 69 Year
  Sex: Male

DRUGS (3)
  1. SIROLIMUS [Suspect]
     Active Substance: SIROLIMUS
     Indication: Familial amyloidosis
     Dosage: UNK
  2. AZATHIOPRINE [Suspect]
     Active Substance: AZATHIOPRINE
     Indication: Familial amyloidosis
     Dosage: UNK
  3. PREDNISONE [Suspect]
     Active Substance: PREDNISONE
     Indication: Familial amyloidosis
     Dosage: UNK

REACTIONS (3)
  - Alveolar proteinosis [Unknown]
  - Pulmonary amyloidosis [Unknown]
  - Off label use [Unknown]
